FAERS Safety Report 17588213 (Version 2)
Quarter: 2020Q3

REPORT INFORMATION
  Report Type: Spontaneous
  Country: BR (occurrence: BR)
  Receive Date: 20200326
  Receipt Date: 20200410
  Transmission Date: 20201104
  Serious: Yes (Other)
  Sender: FDA-Public Use
  Company Number: NVSC2020BR084758

PATIENT
  Sex: Male
  Weight: 33 kg

DRUGS (9)
  1. AVAMYS [Suspect]
     Active Substance: FLUTICASONE FUROATE
     Indication: LUNG DISORDER
     Dosage: 2 DF, QD (PER NOSTRIL)
     Route: 045
  2. TORIPA [Suspect]
     Active Substance: GLYCERIN\SALICYLIC ACID
     Indication: AGGRESSION
     Dosage: 0.5 DF, BID
     Route: 048
  3. MELATONINA [Suspect]
     Active Substance: MELATONIN
     Indication: SLEEP DISORDER
     Dosage: 1 ML, QD
     Route: 048
  4. PEG [Suspect]
     Active Substance: POLYETHYLENE GLYCOLS
     Indication: PRODUCT USE IN UNAPPROVED INDICATION
     Dosage: 9 G, QD
     Route: 048
  5. VIATINE [Suspect]
     Active Substance: MONTELUKAST SODIUM
     Indication: LUNG DISORDER
     Dosage: 1 DF, QD
     Route: 048
  6. LABEL [Suspect]
     Active Substance: RANITIDINE HYDROCHLORIDE
     Indication: GASTROOESOPHAGEAL REFLUX DISEASE
     Dosage: 50 DRP, BID EACH
     Route: 048
  7. TEGRETOL [Suspect]
     Active Substance: CARBAMAZEPINE
     Indication: CHROMOSOMAL DELETION
     Dosage: 14 ML, QD, 3 YEARS AGO
     Route: 048
  8. SERETIDE [Suspect]
     Active Substance: FLUTICASONE PROPIONATE\SALMETEROL XINAFOATE
     Indication: LUNG DISORDER
     Dosage: 1 DF PER TIME (SPRAYED)
     Route: 055
  9. SORINE [Suspect]
     Active Substance: SOTALOL HYDROCHLORIDE
     Indication: NASAL DISCOMFORT
     Dosage: 4 DF, (PER NOSTRIL SPRAYED) FOUR TIMES A DAY
     Route: 045

REACTIONS (30)
  - Upper respiratory tract infection [Not Recovered/Not Resolved]
  - Behaviour disorder [Unknown]
  - Psychomotor hyperactivity [Unknown]
  - Immune system disorder [Not Recovered/Not Resolved]
  - Central obesity [Unknown]
  - Motor developmental delay [Not Recovered/Not Resolved]
  - Obsessive-compulsive disorder [Unknown]
  - Tooth development disorder [Unknown]
  - Ear infection [Not Recovered/Not Resolved]
  - Seizure [Not Recovered/Not Resolved]
  - Hypotonia [Not Recovered/Not Resolved]
  - Stereotypy [Unknown]
  - Generalised anxiety disorder [Unknown]
  - Peripheral coldness [Unknown]
  - Autism spectrum disorder [Not Recovered/Not Resolved]
  - Foot deformity [Unknown]
  - Intellectual disability [Not Recovered/Not Resolved]
  - Dyspraxia [Not Recovered/Not Resolved]
  - Gait disturbance [Not Recovered/Not Resolved]
  - Social avoidant behaviour [Unknown]
  - Sensory processing disorder [Unknown]
  - Attention deficit hyperactivity disorder [Unknown]
  - Hypoaesthesia [Unknown]
  - Visual impairment [Unknown]
  - Sleep apnoea syndrome [Not Recovered/Not Resolved]
  - Muscular weakness [Not Recovered/Not Resolved]
  - Apraxia [Not Recovered/Not Resolved]
  - Sleep disorder [Not Recovered/Not Resolved]
  - Aggression [Unknown]
  - Affective disorder [Unknown]
